FAERS Safety Report 16732170 (Version 6)
Quarter: 2019Q3

REPORT INFORMATION
  Report Type: Report from Study
  Country: US (occurrence: US)
  Receive Date: 20190822
  Receipt Date: 20190930
  Transmission Date: 20191005
  Serious: Yes (Hospitalization)
  Sender: FDA-Public Use
  Company Number: US-ACTELION-A-US2018-172067

PATIENT
  Age: 75 Year
  Sex: Female
  Weight: 58.96 kg

DRUGS (12)
  1. OPSUMIT [Suspect]
     Active Substance: MACITENTAN
     Indication: PULMONARY HYPERTENSION
     Dosage: 10 MG, QD
     Route: 048
     Dates: start: 20180314
  2. VELETRI [Suspect]
     Active Substance: EPOPROSTENOL
     Indication: PULMONARY HYPERTENSION
     Dosage: 29 NG/KG, PER MIN
     Route: 042
  3. VELETRI [Suspect]
     Active Substance: EPOPROSTENOL
     Dosage: 6 NG/KG, PER MIN
     Route: 042
  4. CRESTOR [Concomitant]
     Active Substance: ROSUVASTATIN CALCIUM
     Dosage: 4 MG, UNK
  5. VELETRI [Suspect]
     Active Substance: EPOPROSTENOL
     Dosage: 3 NG/KG, PER MIN
     Route: 042
     Dates: start: 201806
  6. VELETRI [Suspect]
     Active Substance: EPOPROSTENOL
     Dosage: 18 NG/KG, PER MIN
     Route: 042
  7. LASIX [Concomitant]
     Active Substance: FUROSEMIDE
     Dosage: 40 MG, BID
     Dates: start: 20180307
  8. LASIX [Concomitant]
     Active Substance: FUROSEMIDE
     Dosage: 40 MG, QD
     Dates: start: 201802
  9. SILDENAFIL. [Suspect]
     Active Substance: SILDENAFIL
     Indication: PRODUCT USED FOR UNKNOWN INDICATION
     Route: 065
  10. VELETRI [Suspect]
     Active Substance: EPOPROSTENOL
     Dosage: 16 NG/KG, PER MIN
     Route: 042
  11. VELETRI [Suspect]
     Active Substance: EPOPROSTENOL
     Dosage: 20 NG/KG, PER MIN
     Route: 042
  12. OXYGEN. [Concomitant]
     Active Substance: OXYGEN
     Dosage: UNK, QPM

REACTIONS (64)
  - Macule [Unknown]
  - Cardiomegaly [Unknown]
  - Limb operation [Unknown]
  - Hypotension [Unknown]
  - Nausea [Unknown]
  - Sinusitis [Recovered/Resolved]
  - Sinus congestion [Unknown]
  - Nasal congestion [Unknown]
  - Cataract [Unknown]
  - Pain in extremity [Recovering/Resolving]
  - Blood pressure decreased [Unknown]
  - Right ventricular failure [Unknown]
  - Secretion discharge [Recovered/Resolved]
  - Diarrhoea [Unknown]
  - Oxygen saturation decreased [Unknown]
  - Dizziness [Unknown]
  - Pulmonary arterial pressure increased [Unknown]
  - Sepsis [Unknown]
  - Catheter site haemorrhage [Unknown]
  - Back pain [Unknown]
  - Rhinorrhoea [Recovered/Resolved]
  - Flatulence [Unknown]
  - Abdominal pain upper [Unknown]
  - Abdominal discomfort [Unknown]
  - Therapy non-responder [Unknown]
  - Neuropathy peripheral [Unknown]
  - Rash [Unknown]
  - Catheter management [Unknown]
  - Debridement [Unknown]
  - Clostridium difficile infection [Unknown]
  - Abdominal distension [Unknown]
  - Sjogren^s syndrome [Unknown]
  - Condition aggravated [Unknown]
  - Anorectal disorder [Unknown]
  - Epicondylitis [Unknown]
  - Blood potassium decreased [Unknown]
  - Dermatitis allergic [Unknown]
  - Gout [Unknown]
  - Respiratory tract infection [Unknown]
  - Headache [Unknown]
  - Cold sweat [Unknown]
  - Fatigue [Unknown]
  - Oedema [Unknown]
  - Dry eye [Unknown]
  - Ocular hypertension [Unknown]
  - Flushing [Unknown]
  - Anal incontinence [Unknown]
  - Dyspnoea [Unknown]
  - Micturition urgency [Unknown]
  - Insomnia [Unknown]
  - Nasopharyngitis [Unknown]
  - Dry mouth [Unknown]
  - Adverse event [Unknown]
  - Unevaluable event [Unknown]
  - Localised infection [Unknown]
  - Vascular device infection [Unknown]
  - Pyrexia [Unknown]
  - Bacterial infection [Unknown]
  - Cough [Recovered/Resolved]
  - Decreased appetite [Unknown]
  - Weight decreased [Unknown]
  - Bowel movement irregularity [Unknown]
  - Ocular hyperaemia [Unknown]
  - Abdominal pain [Unknown]

NARRATIVE: CASE EVENT DATE: 2018
